FAERS Safety Report 15660135 (Version 1)
Quarter: 2018Q4

REPORT INFORMATION
  Report Type: Spontaneous
  Country: US (occurrence: US)
  Receive Date: 20181115
  Receipt Date: 20181115
  Transmission Date: 20190205
  Serious: No
  Sender: FDA-Public Use
  Company Number: None

PATIENT
  Age: 70 Year
  Sex: Male

DRUGS (1)
  1. LIRAGLUTIDE [Suspect]
     Active Substance: LIRAGLUTIDE
     Indication: DIABETES MELLITUS
     Dosage: ?          OTHER DOSE:1.2MG MG;?
     Route: 058
     Dates: start: 20180927, end: 20181106

REACTIONS (3)
  - Vomiting [None]
  - Gastrointestinal pain [None]
  - Nausea [None]

NARRATIVE: CASE EVENT DATE: 20181022
